FAERS Safety Report 13054187 (Version 1)
Quarter: 2016Q4

REPORT INFORMATION
  Report Type: Report from Study
  Country: PT (occurrence: PT)
  Receive Date: 20161222
  Receipt Date: 20161222
  Transmission Date: 20170207
  Serious: Yes (Other)
  Sender: FDA-Public Use
  Company Number: PT-B. BRAUN MEDICAL INC.-1061154

PATIENT
  Age: 62 Year
  Sex: Female

DRUGS (7)
  1. SIMVASTATIN. [Concomitant]
     Active Substance: SIMVASTATIN
  2. PLASMA [Concomitant]
     Active Substance: HUMAN PLASMA
  3. POTASSIUM CHLORIDE FOR INJECTION CONCENTRATE USP 0264-1940-20 [Suspect]
     Active Substance: POTASSIUM CHLORIDE
     Indication: HYPOKALAEMIA
     Route: 042
  4. SODIUM CHLORIDE. [Concomitant]
     Active Substance: SODIUM CHLORIDE
  5. OXAZEPAM. [Concomitant]
     Active Substance: OXAZEPAM
  6. VITAMIN K [Concomitant]
     Active Substance: PHYTONADIONE
  7. HYDROCHLOROTHIAZIDE W/ CILAZAPRIL [Concomitant]
     Active Substance: CILAZAPRIL ANHYDROUS\HYDROCHLOROTHIAZIDE

REACTIONS (1)
  - Osmotic demyelination syndrome [None]
